FAERS Safety Report 11302326 (Version 1)
Quarter: 2015Q3

REPORT INFORMATION
  Report Type: Spontaneous
  Country: ES (occurrence: ES)
  Receive Date: 20150723
  Receipt Date: 20150723
  Transmission Date: 20151125
  Serious: Yes (Life-Threatening, Hospitalization)
  Sender: FDA-Public Use
  Company Number: ES-NOVOPROD-457169

PATIENT
  Age: 78 Year
  Sex: Female

DRUGS (10)
  1. DOCLIS [Concomitant]
     Dosage: 240 MG (1-0-0)
     Route: 065
  2. LOSARTAN. [Concomitant]
     Active Substance: LOSARTAN
     Dosage: 50 MG (0-1-0)
     Route: 065
  3. OMEPRAZOL                          /00661201/ [Concomitant]
     Active Substance: OMEPRAZOLE
     Dosage: 20 MG (1-0-0)
     Route: 065
  4. NOVOMIX 30 FLEXPEN [Suspect]
     Active Substance: INSULIN ASPART
     Indication: DIABETES MELLITUS
     Dosage: 22-18-18 TID
     Route: 058
  5. NOVOMIX 30 FLEXPEN [Suspect]
     Active Substance: INSULIN ASPART
     Dosage: UNK
     Route: 058
     Dates: start: 20150124, end: 20150124
  6. TRANKIMAZIN [Suspect]
     Active Substance: ALPRAZOLAM
     Dosage: 5 G, QD
     Route: 048
     Dates: start: 20150124, end: 20150124
  7. ZARATOR                            /01326101/ [Concomitant]
     Active Substance: ATORVASTATIN CALCIUM
     Dosage: 20 MG (0-0-1)
     Route: 065
  8. TRANKIMAZIN [Suspect]
     Active Substance: ALPRAZOLAM
     Indication: PRODUCT USED FOR UNKNOWN INDICATION
     Dosage: 0.25 MG, QD
     Route: 048
  9. APOCARD [Concomitant]
     Active Substance: FLECAINIDE ACETATE
     Dosage: 100 MG (1-0-0)
     Route: 065
  10. SINTROM [Concomitant]
     Active Substance: ACENOCOUMAROL
     Dosage: 4 MG (0-0-1/2)
     Route: 065

REACTIONS (3)
  - Hypoglycaemic coma [Recovered/Resolved]
  - Suicide attempt [Unknown]
  - Intentional overdose [Recovered/Resolved]

NARRATIVE: CASE EVENT DATE: 20150124
